FAERS Safety Report 4303451-9 (Version None)
Quarter: 2004Q1

REPORT INFORMATION
  Report Type: 
  Country: None (occurrence: None)
  Receive Date: 20040223
  Receipt Date: 20040202
  Transmission Date: 20041129
  Serious: No
  Sender: FDA-Public Use
  Company Number: A01200400482

PATIENT
  Age: 68 Year
  Sex: Female

DRUGS (11)
  1. (ZOLPIDEM) -TABLET- 5MG/TABLET - 5MG [Suspect]
     Dosage: 2.5 MG/5 MG ONCE ORAL
     Route: 048
     Dates: start: 20030618, end: 20031014
  2. (ZOLPIDEM) -TABLET- 5MG/TABLET - 5MG [Suspect]
     Dosage: 2.5 MG/5 MG ONCE ORAL
     Route: 048
     Dates: start: 20031015, end: 20031015
  3. CAFERGOT [Concomitant]
  4. NORVASC [Concomitant]
  5. POLARAMIN (DEXCHLORPHEMIRAMINE MALEATE) [Concomitant]
  6. MERISLON (BETAHISTINE HYDROCHLORIDE) [Concomitant]
  7. MUCOSTA (REBAMIPIDE) [Concomitant]
  8. VITAMEDIN (BENFOTIAMINE) [Concomitant]
  9. GAMOFA (FAMOTIDINE) [Concomitant]
  10. PRAVASTATIN [Concomitant]
  11. GLIMICRON (GLICLAZIDE) [Concomitant]

REACTIONS (6)
  - AMNESIA [None]
  - COMA [None]
  - CONFUSIONAL STATE [None]
  - DELIRIUM [None]
  - EXCITABILITY [None]
  - HYPERSOMNIA [None]
